FAERS Safety Report 13260850 (Version 1)
Quarter: 2017Q1

REPORT INFORMATION
  Report Type: Spontaneous
  Country: US (occurrence: US)
  Receive Date: 20170222
  Receipt Date: 20170222
  Transmission Date: 20170428
  Serious: No
  Sender: FDA-Public Use
  Company Number: US-BAYER-2017-034079

PATIENT
  Age: 23 Year
  Sex: Female

DRUGS (2)
  1. MIRENA [Suspect]
     Active Substance: LEVONORGESTREL
     Indication: CONTRACEPTION
     Dosage: 20 MG, CONT
     Route: 015
     Dates: start: 20140929
  2. MIRENA [Suspect]
     Active Substance: LEVONORGESTREL
     Indication: MENORRHAGIA

REACTIONS (5)
  - Back pain [Unknown]
  - Breast tenderness [Unknown]
  - Amenorrhoea [Unknown]
  - Abdominal distension [Unknown]
  - Irritability [Unknown]

NARRATIVE: CASE EVENT DATE: 201409
